FAERS Safety Report 20835919 (Version 2)
Quarter: 2023Q1

REPORT INFORMATION
  Report Type: Report from Study
  Country: GB (occurrence: GB)
  Receive Date: 20220516
  Receipt Date: 20230222
  Transmission Date: 20230418
  Serious: Yes (Hospitalization, Other)
  Sender: FDA-Public Use
  Company Number: GB-CELLTRION INC.-2022GB006377

PATIENT

DRUGS (57)
  1. TRASTUZUMAB [Suspect]
     Active Substance: TRASTUZUMAB
     Indication: Breast cancer metastatic
     Dosage: 630 MG ONCE IN 3 WEEKS
     Route: 041
     Dates: start: 20170825, end: 20170825
  2. TRASTUZUMAB [Suspect]
     Active Substance: TRASTUZUMAB
     Dosage: 483 MG ONCE IN 3 WEEKS
     Route: 041
     Dates: start: 20170915, end: 20180209
  3. TRASTUZUMAB [Suspect]
     Active Substance: TRASTUZUMAB
     Dosage: 504 MG ONCE IN 3 WEEKS
     Route: 041
     Dates: start: 20180209, end: 20210715
  4. TRASTUZUMAB [Suspect]
     Active Substance: TRASTUZUMAB
     Dosage: 651 MG (LOADING DOSE)
     Route: 041
     Dates: start: 20211111, end: 20211111
  5. TRASTUZUMAB [Suspect]
     Active Substance: TRASTUZUMAB
     Dosage: 504 MG ONCE IN 3 WEEKS
     Route: 041
     Dates: start: 20211122, end: 20220321
  6. PERTUZUMAB [Suspect]
     Active Substance: PERTUZUMAB
     Indication: Breast cancer metastatic
     Dosage: 840 MG ONCE IN 3 WEEKS
     Route: 042
     Dates: start: 20170824, end: 20170824
  7. PERTUZUMAB [Suspect]
     Active Substance: PERTUZUMAB
     Dosage: 420 MG ONCE IN 3 WEEKS
     Route: 042
     Dates: start: 20170915, end: 20210715
  8. PERTUZUMAB [Suspect]
     Active Substance: PERTUZUMAB
     Dosage: 840 MG (LOADING DOSE)
     Route: 042
     Dates: start: 20211111, end: 20211111
  9. PERTUZUMAB [Suspect]
     Active Substance: PERTUZUMAB
     Dosage: 420 MG ONCE IN 3 WEEKS
     Route: 042
     Dates: start: 20211122, end: 20220321
  10. DOCETAXEL [Suspect]
     Active Substance: DOCETAXEL
     Indication: Breast cancer metastatic
     Dosage: 108 MG ONCE IN 3 WEEKS (NUMBER OF CYCLES PER REGIMEN: 6)
     Route: 042
     Dates: start: 20170825, end: 20170915
  11. DOCETAXEL [Suspect]
     Active Substance: DOCETAXEL
     Dosage: 96 MG ONCE IN 3 WEEKS (NUMBER OF CYCLES PER REGIMEN: 5)
     Route: 042
     Dates: start: 20170915, end: 20171208
  12. EXEMESTANE [Suspect]
     Active Substance: EXEMESTANE
     Indication: Breast cancer metastatic
     Dosage: 25 MG, ONCE A DAY
     Route: 048
     Dates: start: 20180209
  13. HYALURONIDASE [Suspect]
     Active Substance: HYALURONIDASE
     Indication: Breast cancer metastatic
     Dosage: 1200 MG ONCE IN 3 WEEKS
     Route: 058
     Dates: start: 20210715, end: 20210923
  14. CALCIUM CARBONATE\CHOLECALCIFEROL [Concomitant]
     Active Substance: CALCIUM CARBONATE\CHOLECALCIFEROL
     Dosage: 1 DF, QD
     Route: 048
     Dates: start: 20170825
  15. ALENDRONIC ACID [Concomitant]
     Active Substance: ALENDRONIC ACID
     Dosage: 70 MG WEEKLY
     Route: 048
  16. AMLODIPINE [Concomitant]
     Active Substance: AMLODIPINE BESYLATE
     Indication: Hypertension
     Dosage: 5 MG, QD
     Route: 048
  17. AMOXICILLIN [Concomitant]
     Active Substance: AMOXICILLIN
     Dosage: 1500 MG, QD
     Route: 048
     Dates: start: 20191104, end: 20191112
  18. AMOXICILLIN [Concomitant]
     Active Substance: AMOXICILLIN
     Dosage: 1500 MG, QD
     Route: 048
     Dates: start: 20210205, end: 20210212
  19. AMOXICILLIN [Concomitant]
     Active Substance: AMOXICILLIN
     Dosage: 1875 MG, QD
     Route: 048
     Dates: start: 20210315, end: 20210322
  20. AMOXICILLIN [Concomitant]
     Active Substance: AMOXICILLIN
     Dosage: 1500 MG, QD
     Route: 048
     Dates: start: 20220330, end: 20220409
  21. APIXABAN [Concomitant]
     Active Substance: APIXABAN
     Dosage: 10 MG, QD
     Route: 048
     Dates: start: 20220614
  22. MYROXYLON BALSAMUM [Concomitant]
     Indication: Haemorrhoids
     Dosage: UNK, PRN
     Route: 061
     Dates: start: 20180504
  23. CIPROFLOXACIN [Concomitant]
     Active Substance: CIPROFLOXACIN
     Dosage: 1000 MG, QD
     Route: 048
     Dates: start: 20220622
  24. CLARITHROMYCIN [Concomitant]
     Active Substance: CLARITHROMYCIN
     Dosage: 1000 MG, QD
     Route: 048
     Dates: start: 20200203, end: 20200210
  25. CLARITHROMYCIN [Concomitant]
     Active Substance: CLARITHROMYCIN
     Dosage: 500 MG, QD
     Route: 048
     Dates: start: 20220419, end: 20220426
  26. CLARITHROMYCIN [Concomitant]
     Active Substance: CLARITHROMYCIN
     Dosage: 1000 MG, QD
     Route: 048
     Dates: start: 20200121, end: 20200128
  27. CLOPIDOGREL [Concomitant]
     Active Substance: CLOPIDOGREL BISULFATE
     Dosage: 75 MG, QD
     Route: 048
     Dates: start: 20220612, end: 20220628
  28. AMOXICILLIN\CLAVULANATE POTASSIUM [Concomitant]
     Active Substance: AMOXICILLIN\CLAVULANATE POTASSIUM
     Dosage: 1875 MG, QD
     Route: 048
     Dates: start: 20190122, end: 20190127
  29. AMOXICILLIN\CLAVULANATE POTASSIUM [Concomitant]
     Active Substance: AMOXICILLIN\CLAVULANATE POTASSIUM
     Dosage: 1875 MG, QD
     Route: 048
     Dates: start: 20200121, end: 20200128
  30. AMOXICILLIN\CLAVULANATE POTASSIUM [Concomitant]
     Active Substance: AMOXICILLIN\CLAVULANATE POTASSIUM
     Dosage: 1875 MG, QD
     Route: 048
     Dates: start: 20200203, end: 20200210
  31. CYCLIZINE [Concomitant]
     Active Substance: CYCLIZINE
     Indication: Nausea
     Dosage: 50 MG, PRN
     Route: 048
     Dates: start: 20190718
  32. DENOSUMAB [Concomitant]
     Active Substance: DENOSUMAB
     Dosage: 120 MG, MONTHLY
     Route: 058
     Dates: start: 20180706
  33. DOXYCYCLINE [Concomitant]
     Active Substance: DOXYCYCLINE
     Dosage: 400 MG, QD
     Route: 048
     Dates: start: 20191104, end: 20191111
  34. LANOLIN\LIGHT MINERAL OIL\PARAFFIN [Concomitant]
     Active Substance: LANOLIN\LIGHT MINERAL OIL\PARAFFIN
     Indication: Rash pruritic
     Dosage: UNK, PRN
     Route: 061
     Dates: start: 20180810
  35. FERROUS SULFATE [Concomitant]
     Active Substance: FERROUS SULFATE
     Indication: Anaemia
     Dosage: 200 MG, QD
     Route: 048
  36. FUROSEMIDE [Concomitant]
     Active Substance: FUROSEMIDE
     Dosage: 40 MG, QD
     Route: 048
     Dates: start: 20220612
  37. IBUPROFEN [Concomitant]
     Active Substance: IBUPROFEN
     Indication: Pain
     Dosage: 400 MG, PRN
     Route: 048
     Dates: start: 20190718
  38. LANSOPRAZOLE [Concomitant]
     Active Substance: LANSOPRAZOLE
     Dosage: 30 MG, PRN
     Route: 048
  39. LOPERAMIDE [Concomitant]
     Active Substance: LOPERAMIDE
     Dosage: 2 MG, PRN
     Route: 048
     Dates: start: 20210913
  40. LOSARTAN [Concomitant]
     Active Substance: LOSARTAN
     Indication: Hypertension
     Dosage: 50 MG, QD
     Route: 048
  41. MENTHOL [Concomitant]
     Active Substance: MENTHOL
     Dosage: UNK, PRN
     Route: 061
     Dates: start: 20180810
  42. NITROFURANTOIN [Concomitant]
     Active Substance: NITROFURANTOIN
     Dosage: 200 MG, QD
     Route: 048
     Dates: start: 20210107, end: 20210112
  43. ACETAMINOPHEN [Concomitant]
     Active Substance: ACETAMINOPHEN
     Dosage: 1 G, PRN
     Route: 048
     Dates: start: 20190117
  44. CHLORPHENIRAMINE MALEATE [Concomitant]
     Active Substance: CHLORPHENIRAMINE MALEATE
     Indication: Rash
     Dosage: 4 MG, PRN
     Route: 048
     Dates: start: 20180504
  45. RAMIPRIL [Concomitant]
     Active Substance: RAMIPRIL
     Indication: Hypertension
     Dosage: 2.5 MG, QD
     Route: 048
     Dates: end: 20180504
  46. ALBUTEROL [Concomitant]
     Active Substance: ALBUTEROL
     Dosage: DOSE: 2 PUFF
  47. SODIUM CHLORIDE [Concomitant]
     Active Substance: SODIUM CHLORIDE
     Dosage: 1000 ML
     Route: 042
     Dates: start: 20190118, end: 20190118
  48. SERTRALINE [Concomitant]
     Active Substance: SERTRALINE HYDROCHLORIDE
     Indication: Depression
     Dosage: 100 MG, QD
     Route: 048
  49. PIPERACILLIN SODIUM\TAZOBACTAM SODIUM [Concomitant]
     Active Substance: PIPERACILLIN SODIUM\TAZOBACTAM SODIUM
     Dosage: 13.5 G, QD
     Route: 042
     Dates: start: 20220611, end: 20220622
  50. PIPERACILLIN SODIUM\TAZOBACTAM SODIUM [Concomitant]
     Active Substance: PIPERACILLIN SODIUM\TAZOBACTAM SODIUM
     Dosage: 13.5 G, QD
     Route: 042
     Dates: start: 20210308, end: 20210312
  51. PIPERACILLIN SODIUM\TAZOBACTAM SODIUM [Concomitant]
     Active Substance: PIPERACILLIN SODIUM\TAZOBACTAM SODIUM
     Dosage: 4.5 MG
     Route: 042
     Dates: start: 20200201, end: 20200201
  52. TINZAPARIN [Concomitant]
     Active Substance: TINZAPARIN
     Dosage: DOSE: 11000 UNIT
     Route: 058
     Dates: start: 20220612, end: 20220613
  53. TINZAPARIN [Concomitant]
     Active Substance: TINZAPARIN
     Dosage: 4500 IU, QD
     Route: 058
     Dates: start: 20190117
  54. ZOLEDRONIC ACID [Concomitant]
     Active Substance: ZOLEDRONIC ACID
     Dosage: 4 MG ONCE IN 3 WEEKS
     Route: 042
     Dates: start: 20170915, end: 20180209
  55. ZOLEDRONIC ACID [Concomitant]
     Active Substance: ZOLEDRONIC ACID
     Dosage: 3.3 MG ONCE IN 3 WEEKS
     Route: 042
     Dates: start: 20180525, end: 20180706
  56. ZOLEDRONIC ACID [Concomitant]
     Active Substance: ZOLEDRONIC ACID
     Dosage: 3.5 MG ONCE IN 3 WEEKS
     Route: 042
     Dates: start: 20180302, end: 20180525
  57. AMOXICILLIN\CLAVULANATE POTASSIUM [Concomitant]
     Active Substance: AMOXICILLIN\CLAVULANATE POTASSIUM
     Dosage: 3.6 G, QD
     Route: 042
     Dates: start: 20190117, end: 20190121

REACTIONS (3)
  - Rectal cancer [Not Recovered/Not Resolved]
  - Rectal haemorrhage [Recovered/Resolved]
  - Platelet count decreased [Not Recovered/Not Resolved]

NARRATIVE: CASE EVENT DATE: 20211117
